FAERS Safety Report 10495096 (Version 2)
Quarter: 2014Q4

REPORT INFORMATION
  Report Type: Spontaneous
  Country: US (occurrence: US)
  Receive Date: 20141003
  Receipt Date: 20141003
  Transmission Date: 20150528
  Serious: No
  Sender: FDA-Public Use
  Company Number: US-MYLANLABS-2014S1016401

PATIENT
  Age: 47 Year
  Sex: Female
  Weight: 70.31 kg

DRUGS (3)
  1. METOPROLOL SUCCINATE EXTENDED-RELEASE TABLETS, USP [Suspect]
     Active Substance: METOPROLOL SUCCINATE
     Indication: SUPRAVENTRICULAR TACHYCARDIA
     Dosage: 50MG QD
     Route: 048
  2. CALCIUM                            /01618901/ [Concomitant]
  3. METOPROLOL SUCCINATE EXTENDED-RELEASE TABLETS, USP [Suspect]
     Active Substance: METOPROLOL SUCCINATE
     Indication: OFF LABEL USE
     Dosage: 75MG QD
     Route: 048
     Dates: end: 201407

REACTIONS (3)
  - Alopecia [Not Recovered/Not Resolved]
  - Pain [Recovering/Resolving]
  - Pruritus [Recovering/Resolving]

NARRATIVE: CASE EVENT DATE: 200505
